FAERS Safety Report 25591648 (Version 1)
Quarter: 2025Q3

REPORT INFORMATION
  Report Type: Report from Study
  Country: US (occurrence: US)
  Receive Date: 20250722
  Receipt Date: 20250722
  Transmission Date: 20251021
  Serious: No
  Sender: VANDA PHARMACEUTICALS
  Company Number: US-VANDA PHARMACEUTICALS, INC-2024TASUS007387

PATIENT
  Sex: Male

DRUGS (8)
  1. HETLIOZ [Suspect]
     Active Substance: TASIMELTEON
     Indication: Smith-Magenis syndrome
     Dosage: 20 MILLIGRAM, QD, DAILY AT THE SAME TIME EACH NIGHT 1 HOUR BEFORE BEDTIME, WITHOUT FOOD.
     Route: 048
     Dates: start: 20240512
  2. CONCERTA [Concomitant]
     Active Substance: METHYLPHENIDATE HYDROCHLORIDE
     Indication: Product used for unknown indication
  3. DIVALPROEX SODIUM [Concomitant]
     Active Substance: DIVALPROEX SODIUM
     Indication: Product used for unknown indication
  4. LACOSAMIDE [Concomitant]
     Active Substance: LACOSAMIDE
     Indication: Product used for unknown indication
  5. ACETYLCYSTEINE [Concomitant]
     Active Substance: ACETYLCYSTEINE
     Indication: Product used for unknown indication
  6. PRAZOSIN [Concomitant]
     Active Substance: PRAZOSIN
     Indication: Product used for unknown indication
  7. RISPERIDONE [Concomitant]
     Active Substance: RISPERIDONE
     Indication: Product used for unknown indication
  8. VALTOCO [Concomitant]
     Active Substance: DIAZEPAM
     Indication: Product used for unknown indication

REACTIONS (1)
  - Product use issue [Unknown]
